FAERS Safety Report 12965713 (Version 2)
Quarter: 2016Q4

REPORT INFORMATION
  Report Type: Report from Study
  Country: BR (occurrence: BR)
  Receive Date: 20161122
  Receipt Date: 20161128
  Transmission Date: 20170207
  Serious: Yes (Hospitalization)
  Sender: FDA-Public Use
  Company Number: PHHY2016BR152147

PATIENT
  Age: 62 Year
  Sex: Female
  Weight: 58 kg

DRUGS (2)
  1. EXJADE [Suspect]
     Active Substance: DEFERASIROX
     Indication: MYELODYSPLASTIC SYNDROME
     Dosage: 30 MG/KG (2500 MG), QD
     Route: 065
     Dates: start: 2015
  2. EXJADE [Suspect]
     Active Substance: DEFERASIROX
     Dosage: 500 MG, (5 DAY)
     Route: 065
     Dates: start: 201606

REACTIONS (2)
  - Platelet count decreased [Recovering/Resolving]
  - Thrombosis [Recovering/Resolving]

NARRATIVE: CASE EVENT DATE: 201604
